FAERS Safety Report 4362051-5 (Version None)
Quarter: 2004Q2

REPORT INFORMATION
  Report Type: 
  Country: None (occurrence: None)
  Receive Date: 20040521
  Receipt Date: 20040225
  Transmission Date: 20050107
  Serious: No
  Sender: FDA-Public Use
  Company Number: US-GLAXOSMITHKLINE-A0499854A

PATIENT
  Age: 26 Year
  Sex: Male

DRUGS (4)
  1. WELLBUTRIN XL [Suspect]
     Dosage: 300MG PER DAY
     Route: 048
     Dates: start: 20040219
  2. NEXIUM [Concomitant]
  3. LEXAPRO [Concomitant]
  4. DEPAKOTE [Concomitant]

REACTIONS (3)
  - HEART RATE INCREASED [None]
  - INSOMNIA [None]
  - TREMOR [None]
